FAERS Safety Report 6756882-1 (Version None)
Quarter: 2010Q2

REPORT INFORMATION
  Report Type: 
  Country: None (occurrence: None)
  Receive Date: 20100604
  Receipt Date: 20100511
  Transmission Date: 20101027
  Serious: Yes (Other)
  Sender: FDA-Public Use
  Company Number: JP-PFIZER INC-2010069655

PATIENT
  Age: 25 Year
  Sex: Female

DRUGS (2)
  1. CELECOX [Suspect]
     Dosage: 100 MG, UNK
     Route: 048
     Dates: start: 20100326
  2. AMITRIPTYLINE HCL [Concomitant]
     Dosage: UNK
     Route: 048
     Dates: start: 20100326, end: 20100422

REACTIONS (1)
  - CHROMATURIA [None]
